FAERS Safety Report 8474285-9 (Version None)
Quarter: 2012Q2

REPORT INFORMATION
  Report Type: 
  Country: None (occurrence: None)
  Receive Date: 20120628
  Receipt Date: 20120620
  Transmission Date: 20120825
  Serious: Yes (Hospitalization, Disabling)
  Sender: FDA-Public Use
  Company Number: US-US-EMD SERONO, INC.-7142348

PATIENT
  Sex: Male

DRUGS (5)
  1. TRAZODONE HCL [Concomitant]
     Indication: PRODUCT USED FOR UNKNOWN INDICATION
  2. REBIF [Suspect]
     Indication: PRODUCT USED FOR UNKNOWN INDICATION
     Route: 058
     Dates: start: 20050811
  3. LISINOPRIL [Concomitant]
     Indication: PRODUCT USED FOR UNKNOWN INDICATION
  4. SIMVASTATIN [Concomitant]
     Indication: BLOOD CHOLESTEROL INCREASED
  5. SIMVASTATIN [Concomitant]

REACTIONS (5)
  - HEART VALVE STENOSIS [None]
  - MUSCULAR WEAKNESS [None]
  - DEAFNESS BILATERAL [None]
  - ARTHRITIS [None]
  - ANXIETY DISORDER [None]
